FAERS Safety Report 23592972 (Version 2)
Quarter: 2024Q2

REPORT INFORMATION
  Report Type: Spontaneous
  Country: US (occurrence: US)
  Receive Date: 20240304
  Receipt Date: 20240402
  Transmission Date: 20240715
  Serious: Yes (Hospitalization, Other)
  Sender: FDA-Public Use
  Company Number: US-PFIZER INC-PV202200059023

PATIENT
  Age: 66 Year
  Sex: Female

DRUGS (10)
  1. IBRANCE [Suspect]
     Active Substance: PALBOCICLIB
     Indication: Breast cancer female
     Dosage: ONCE DAILY, 21 DAYS ON, 7 DAYS OFF
     Route: 048
     Dates: start: 201807
  2. IBRANCE [Suspect]
     Active Substance: PALBOCICLIB
     Indication: Breast cancer metastatic
     Dosage: ONCE DAILY, 21 DAYS ON, 7 DAYS OFF
     Route: 048
     Dates: start: 20230712, end: 20231128
  3. IBRANCE [Suspect]
     Active Substance: PALBOCICLIB
     Dosage: ONCE DAILY, 21 DAYS ON, 7 DAYS OFF
     Route: 048
     Dates: start: 20230714
  4. IBRANCE [Suspect]
     Active Substance: PALBOCICLIB
     Dosage: ONCE DAILY, 21 DAYS ON, 7 DAYS OFF
     Route: 048
     Dates: start: 20231110, end: 20231202
  5. LETROZOLE [Suspect]
     Active Substance: LETROZOLE
     Indication: Breast cancer female
     Dosage: UNK
     Dates: start: 201807
  6. LETROZOLE [Suspect]
     Active Substance: LETROZOLE
     Indication: Breast cancer metastatic
  7. XGEVA [Suspect]
     Active Substance: DENOSUMAB
     Indication: Breast cancer female
     Dosage: UNK
     Dates: start: 201807
  8. XGEVA [Suspect]
     Active Substance: DENOSUMAB
     Indication: Breast cancer metastatic
  9. PALBOCICLIB ISETHIONATE [Suspect]
     Active Substance: PALBOCICLIB ISETHIONATE
     Indication: Breast cancer female
     Dosage: QD (75MG DAILY ON DAYS 1-21)
     Dates: start: 201807
  10. PALBOCICLIB ISETHIONATE [Suspect]
     Active Substance: PALBOCICLIB ISETHIONATE
     Indication: Breast cancer metastatic

REACTIONS (9)
  - Diverticulitis [Recovering/Resolving]
  - Neutropenia [Unknown]
  - Haemoglobin decreased [Unknown]
  - Haematocrit decreased [Unknown]
  - Red blood cell count decreased [Unknown]
  - Mean cell volume increased [Unknown]
  - Eosinophil count decreased [Unknown]
  - Basophil count decreased [Unknown]
  - Anion gap increased [Unknown]
